FAERS Safety Report 25724970 (Version 1)
Quarter: 2025Q3

REPORT INFORMATION
  Report Type: Spontaneous
  Country: US (occurrence: US)
  Receive Date: 20250826
  Receipt Date: 20250826
  Transmission Date: 20251021
  Serious: Yes (Death, Other)
  Sender: Kenvue
  Company Number: US-KENVUE-20250806485

PATIENT
  Sex: Male

DRUGS (1)
  1. BENADRYL ALLERGY ULTRATAB [Suspect]
     Active Substance: DIPHENHYDRAMINE HYDROCHLORIDE
     Indication: Somnolence
     Route: 065

REACTIONS (3)
  - Death [Fatal]
  - Product administration error [Fatal]
  - Product use in unapproved indication [Fatal]
